FAERS Safety Report 9672198 (Version 1)
Quarter: 2013Q4

REPORT INFORMATION
  Report Type: Spontaneous
  Country: US (occurrence: US)
  Receive Date: 20131106
  Receipt Date: 20131106
  Transmission Date: 20140711
  Serious: Yes (Other)
  Sender: FDA-Public Use
  Company Number: US-BRISTOL-MYERS SQUIBB COMPANY-19661347

PATIENT
  Sex: Female
  Weight: 113.38 kg

DRUGS (3)
  1. ABILIFY [Suspect]
     Indication: BIPOLAR II DISORDER
  2. LAMICTAL [Concomitant]
  3. PROPRANOLOL [Concomitant]

REACTIONS (3)
  - Pituitary-dependent Cushing^s syndrome [Unknown]
  - Weight increased [Unknown]
  - Feeling abnormal [Unknown]
